FAERS Safety Report 17611273 (Version 1)
Quarter: 2020Q2

REPORT INFORMATION
  Report Type: Report from Study
  Country: US (occurrence: US)
  Receive Date: 20200401
  Receipt Date: 20200401
  Transmission Date: 20200713
  Serious: Yes (Other)
  Sender: FDA-Public Use
  Company Number: US-PFIZER INC-2018071033

PATIENT
  Age: 55 Year
  Sex: Female

DRUGS (1)
  1. SUTENT [Suspect]
     Active Substance: SUNITINIB MALATE
     Indication: RENAL CELL CARCINOMA
     Dosage: 50 MG, CYCLIC (14 DAYS ON, 21 DAYS OFF)
     Route: 048
     Dates: start: 20111015

REACTIONS (4)
  - Neuropathy peripheral [Unknown]
  - Oral pain [Unknown]
  - Skin exfoliation [Unknown]
  - Product dose omission [Unknown]
